FAERS Safety Report 9663721 (Version 2)
Quarter: 2014Q2

REPORT INFORMATION
  Report Type: Report from Study
  Country: US (occurrence: US)
  Receive Date: 20131101
  Receipt Date: 20140521
  Transmission Date: 20141212
  Serious: Yes (Death, Hospitalization)
  Sender: FDA-Public Use
  Company Number: PHHO2013US013965

PATIENT
  Age: 49 Year
  Sex: Male

DRUGS (5)
  1. SOM230 [Suspect]
     Indication: GASTROINTESTINAL CARCINOMA
     Dosage: 230 MG, EVERY 28 DAYS
     Route: 030
     Dates: start: 20130226, end: 20130603
  2. SOM230 [Suspect]
     Indication: COLON CANCER
  3. IRINOTECAN SANDOZ [Suspect]
     Indication: GASTROINTESTINAL CARCINOMA
     Dosage: UNK
     Dates: start: 20130226, end: 20130603
  4. FLUOROURACIL [Suspect]
     Indication: GASTROINTESTINAL CARCINOMA
     Dosage: UNK
     Dates: start: 20130226, end: 20130603
  5. LEUCOVORIN CALCIUM SANDOZ [Suspect]
     Indication: GASTROINTESTINAL CARCINOMA
     Dosage: UNK
     Dates: start: 20130226, end: 20130603

REACTIONS (4)
  - Malignant neoplasm progression [Fatal]
  - Liver function test abnormal [Unknown]
  - Renal failure acute [Unknown]
  - Back pain [Unknown]
